FAERS Safety Report 7845062-4 (Version None)
Quarter: 2011Q4

REPORT INFORMATION
  Report Type: 
  Country: None (occurrence: None)
  Receive Date: 20111025
  Receipt Date: 20111019
  Transmission Date: 20120403
  Serious: Yes (Hospitalization)
  Sender: FDA-Public Use
  Company Number: GB-PFIZER INC-2011253275

PATIENT
  Age: 35 Year

DRUGS (3)
  1. PROPOFOL [Suspect]
     Route: 042
  2. HALOPERIDOL [Suspect]
  3. MORPHINE SULFATE [Suspect]

REACTIONS (2)
  - RENAL FAILURE ACUTE [None]
  - RHABDOMYOLYSIS [None]
